FAERS Safety Report 6849842-3 (Version None)
Quarter: 2010Q3

REPORT INFORMATION
  Report Type: 
  Country: None (occurrence: None)
  Receive Date: 20100716
  Receipt Date: 20071005
  Transmission Date: 20110219
  Serious: No
  Sender: FDA-Public Use
  Company Number: US-PFIZER INC-2007085020

PATIENT
  Sex: Female
  Weight: 64.4 kg

DRUGS (3)
  1. CHANTIX [Suspect]
     Indication: SMOKING CESSATION THERAPY
     Dates: start: 20070928, end: 20071004
  2. ANTIHYPERTENSIVES [Concomitant]
     Indication: HYPERTENSION
  3. DRUG, UNSPECIFIED [Concomitant]

REACTIONS (2)
  - CONSTIPATION [None]
  - INSOMNIA [None]
